FAERS Safety Report 5179414-0 (Version None)
Quarter: 2006Q4

REPORT INFORMATION
  Report Type: 
  Country: None (occurrence: None)
  Receive Date: 20061219
  Receipt Date: 20061211
  Transmission Date: 20070319
  Serious: Yes (Other)
  Sender: FDA-Public Use
  Company Number: US-AMGEN-STX203203

PATIENT
  Sex: Female

DRUGS (1)
  1. ENBREL [Suspect]
     Indication: PSORIASIS
     Route: 058
     Dates: start: 20050201

REACTIONS (4)
  - NASAL CONGESTION [None]
  - NASOPHARYNGITIS [None]
  - PRODUCTIVE COUGH [None]
  - THYROID CYST [None]
